FAERS Safety Report 13661914 (Version 1)
Quarter: 2017Q2

REPORT INFORMATION
  Report Type: Spontaneous
  Country: US (occurrence: US)
  Receive Date: 20170616
  Receipt Date: 20170616
  Transmission Date: 20170830
  Serious: Yes (Other)
  Sender: FDA-Public Use
  Company Number: US-PRINSTON PHARMACEUTICAL INC.-2017PRN00278

PATIENT
  Sex: Male
  Weight: 86.9 kg

DRUGS (15)
  1. AFINITOR [Concomitant]
     Active Substance: EVEROLIMUS
     Dosage: UNK, 5 OR 10 MG 1X/DAY
     Dates: start: 201606
  2. MAGNESIUM OXIDE. [Concomitant]
     Active Substance: MAGNESIUM OXIDE
  3. AMLODIPINE [Concomitant]
     Active Substance: AMLODIPINE BESYLATE
  4. VITAMIN D [Concomitant]
     Active Substance: CHOLECALCIFEROL
  5. SODIUM CHLORIDE. [Concomitant]
     Active Substance: SODIUM CHLORIDE
  6. LISINOPRIL. [Suspect]
     Active Substance: LISINOPRIL
     Indication: HYPERTENSION
     Dosage: UNK
     Route: 048
     Dates: start: 201610, end: 201610
  7. LENVIMA [Suspect]
     Active Substance: LENVATINIB
     Indication: RENAL CELL CARCINOMA
     Dosage: 14 MG, 1X/DAY
     Route: 048
     Dates: start: 201606
  8. ONDANSETRON [Concomitant]
     Active Substance: ONDANSETRON
  9. LISINOPRIL. [Suspect]
     Active Substance: LISINOPRIL
     Dosage: UNK
     Dates: start: 201703, end: 201703
  10. CLONIDINE. [Concomitant]
     Active Substance: CLONIDINE
  11. EVEROLIMUS [Concomitant]
     Active Substance: EVEROLIMUS
  12. MEGACE [Concomitant]
     Active Substance: MEGESTROL ACETATE
  13. K PHOS DI AND MONO-SOD PHOS MONO [Concomitant]
  14. OXYCODONE [Concomitant]
     Active Substance: OXYCODONE
  15. FLULAVAL [Concomitant]

REACTIONS (11)
  - Hypertension [Recovered/Resolved]
  - Dizziness [Unknown]
  - Peripheral swelling [Unknown]
  - Dental caries [Unknown]
  - Dyspnoea [Unknown]
  - Weight decreased [Unknown]
  - Pain [Unknown]
  - Dysphonia [Unknown]
  - Local swelling [Recovered/Resolved]
  - Nausea [Unknown]
  - Angioedema [Recovered/Resolved]

NARRATIVE: CASE EVENT DATE: 2016
